FAERS Safety Report 9840884 (Version 1)
Quarter: 2013Q4

REPORT INFORMATION
  Report Type: Spontaneous
  Country: US (occurrence: None)
  Receive Date: 20131223
  Receipt Date: 20131223
  Transmission Date: 20140711
  Serious: No
  Sender: FDA-Public Use
  Company Number: 220331LEO

PATIENT
  Age: 54 Year
  Sex: Female

DRUGS (1)
  1. PICATO [Suspect]
     Indication: ACTINIC KERATOSIS
     Route: 061
     Dates: start: 20130122, end: 20130124

REACTIONS (5)
  - Herpes simplex [None]
  - Temperature intolerance [None]
  - Herpes simplex [None]
  - Neuralgia [None]
  - Drug administration error [None]
